FAERS Safety Report 13372771 (Version 1)
Quarter: 2017Q1

REPORT INFORMATION
  Report Type: Spontaneous
  Country: US (occurrence: US)
  Receive Date: 20170327
  Receipt Date: 20170327
  Transmission Date: 20170429
  Serious: Yes (Other)
  Sender: FDA-Public Use
  Company Number: US-ROCHE-1909614

PATIENT
  Age: 8 Year
  Sex: Male
  Weight: 20.4 kg

DRUGS (3)
  1. 5-FLUOROURACIL [Concomitant]
     Active Substance: FLUOROURACIL
     Route: 061
  2. VISMODEGIB [Suspect]
     Active Substance: VISMODEGIB
     Indication: BASAL CELL CARCINOMA
     Route: 048
  3. IMIQUIMOD. [Concomitant]
     Active Substance: IMIQUIMOD
     Route: 061

REACTIONS (7)
  - Off label use [Unknown]
  - Product use issue [Unknown]
  - Asthenia [Unknown]
  - Drug administered to patient of inappropriate age [Unknown]
  - Abnormal behaviour [Not Recovered/Not Resolved]
  - Alopecia [Unknown]
  - Dysgeusia [Unknown]
